FAERS Safety Report 6015957-5 (Version None)
Quarter: 2008Q4

REPORT INFORMATION
  Report Type: 
  Country: None (occurrence: None)
  Receive Date: 20081218
  Receipt Date: 20081203
  Transmission Date: 20090506
  Serious: Yes (Death)
  Sender: FDA-Public Use
  Company Number: FABR-1000501

PATIENT
  Age: 58 Year
  Sex: Male
  Weight: 69 kg

DRUGS (8)
  1. FABRAZYME (AGALSIDASE BETA) POWDER [Suspect]
     Indication: FABRY'S DISEASE
     Dosage: 70 MG, Q2W; INTRAVENOUS
     Route: 042
     Dates: start: 20010801
  2. MARCUMAR [Suspect]
     Indication: DRUG USE FOR UNKNOWN INDICATION
  3. ATACAND [Concomitant]
  4. LASIX [Concomitant]
  5. AMIODARONE HYDROCHLORIDE [Concomitant]
  6. ALDACTONE [Concomitant]
  7. PALLADONE [Concomitant]
  8. AMIODARONE HCL [Concomitant]

REACTIONS (3)
  - CARDIAC FAILURE [None]
  - DISEASE PROGRESSION [None]
  - FABRY'S DISEASE [None]
